FAERS Safety Report 4891121-8 (Version None)
Quarter: 2006Q1

REPORT INFORMATION
  Report Type: 
  Country: None (occurrence: None)
  Receive Date: 20060125
  Receipt Date: 20051006
  Transmission Date: 20060701
  Serious: Yes (Death, Hospitalization, Other)
  Sender: FDA-Public Use
  Company Number: US-MERCK-0510USA06100

PATIENT
  Age: 86 Year
  Sex: Male
  Weight: 80 kg

DRUGS (1)
  1. VIOXX [Suspect]
     Indication: ARTHRALGIA
     Route: 048
     Dates: start: 19990101, end: 20030301

REACTIONS (17)
  - ABDOMINAL HERNIA [None]
  - ASTHENIA [None]
  - ATRIOVENTRICULAR BLOCK COMPLETE [None]
  - CARDIAC ARREST [None]
  - CEREBRAL ISCHAEMIA [None]
  - CEREBROVASCULAR ACCIDENT [None]
  - CORONARY ARTERY DISEASE [None]
  - DIVERTICULUM [None]
  - DYSPHAGIA [None]
  - HEART RATE IRREGULAR [None]
  - HYPERTENSION [None]
  - PNEUMONIA ASPIRATION [None]
  - POLYP [None]
  - RESPIRATORY ARREST [None]
  - RESPIRATORY FAILURE [None]
  - SEPSIS [None]
  - SICK SINUS SYNDROME [None]
